FAERS Safety Report 10005683 (Version 1)
Quarter: 2014Q1

REPORT INFORMATION
  Report Type: Spontaneous
  Country: US (occurrence: US)
  Receive Date: 20140313
  Receipt Date: 20140313
  Transmission Date: 20141002
  Serious: No
  Sender: FDA-Public Use
  Company Number: US-BIOGENIDEC-2014BI021278

PATIENT
  Age: 44 Year
  Sex: Female
  Weight: 79 kg

DRUGS (1)
  1. TECFIDERA [Suspect]
     Indication: MULTIPLE SCLEROSIS
     Route: 048
     Dates: start: 20140121, end: 20140204

REACTIONS (3)
  - Mobility decreased [Unknown]
  - Nausea [Unknown]
  - Vomiting [Unknown]
